FAERS Safety Report 4312430-7 (Version None)
Quarter: 2004Q1

REPORT INFORMATION
  Report Type: 
  Country: None (occurrence: None)
  Receive Date: 20040304
  Receipt Date: 20040304
  Transmission Date: 20041129
  Serious: Yes (Other)
  Sender: FDA-Public Use
  Company Number: None

PATIENT
  Age: 20 Year
  Sex: Female

DRUGS (3)
  1. SENSORCAINE [Suspect]
     Indication: CAESAREAN SECTION
     Dosage: 1.8ML
     Dates: start: 20040227
  2. SENSORCAINE [Suspect]
     Indication: SPINAL ANAESTHESIA
     Dosage: 1.8ML
     Dates: start: 20040227
  3. PRENATAL VITAMINS [Concomitant]

REACTIONS (2)
  - DRUG INEFFECTIVE [None]
  - PHARMACEUTICAL PRODUCT COMPLAINT [None]
